FAERS Safety Report 9869222 (Version 2)
Quarter: 2014Q1

REPORT INFORMATION
  Report Type: Spontaneous
  Country: US (occurrence: US)
  Receive Date: 20140205
  Receipt Date: 20140304
  Transmission Date: 20141002
  Serious: Yes (Other)
  Sender: FDA-Public Use
  Company Number: PHEH2014US002279

PATIENT
  Sex: Male

DRUGS (4)
  1. EXJADE [Suspect]
     Indication: SICKLE CELL ANAEMIA
     Dosage: 1 DF, QD
     Route: 048
  2. HYDROXYUREA [Concomitant]
     Dosage: UNK UKN, UNK
  3. VICODIN [Concomitant]
     Dosage: UNK UKN, UNK
  4. FOLIC ACID [Concomitant]
     Dosage: UNK UKN, UNK

REACTIONS (1)
  - Priapism [Unknown]
